FAERS Safety Report 11211267 (Version 1)
Quarter: 2015Q2

REPORT INFORMATION
  Report Type: Spontaneous
  Country: US (occurrence: None)
  Receive Date: 20150619
  Receipt Date: 20150619
  Transmission Date: 20150821
  Serious: Yes (Hospitalization)
  Sender: FDA-Public Use
  Company Number: None

PATIENT
  Age: 45 Year
  Sex: Male
  Weight: 68.2 kg

DRUGS (12)
  1. ALBUTEROL. [Concomitant]
     Active Substance: ALBUTEROL
  2. HEPARIN [Suspect]
     Active Substance: HEPARIN SODIUM
     Indication: HEART VALVE REPLACEMENT
     Dosage: RECENT?25,000 UNITS/250ML 39.7 UNITS/KG/HR
     Route: 042
  3. CLONIDINE. [Concomitant]
     Active Substance: CLONIDINE
  4. GENT [Concomitant]
  5. HYDRALAZINE [Concomitant]
     Active Substance: HYDRALAZINE HYDROCHLORIDE
  6. MAALOX ANTACID [Concomitant]
     Active Substance: ALUMINUM HYDROXIDE\DIMETHICONE\MAGNESIUM HYDROXIDE
  7. WARFARIN [Suspect]
     Active Substance: WARFARIN
     Indication: HEART VALVE REPLACEMENT
     Dosage: RECENT
     Route: 048
  8. WARFARIN [Suspect]
     Active Substance: WARFARIN
     Indication: CARDIAC PACEMAKER INSERTION
     Dosage: RECENT
     Route: 048
  9. APAP [Concomitant]
     Active Substance: ACETAMINOPHEN
  10. HEPARIN [Suspect]
     Active Substance: HEPARIN SODIUM
     Indication: CARDIAC PACEMAKER INSERTION
     Dosage: RECENT?25,000 UNITS/250ML 39.7 UNITS/KG/HR
     Route: 042
  11. COLACE [Concomitant]
     Active Substance: DOCUSATE SODIUM
  12. CELEXA [Concomitant]
     Active Substance: CITALOPRAM HYDROBROMIDE

REACTIONS (5)
  - Gastrointestinal haemorrhage [None]
  - Gastric ulcer [None]
  - Cardio-respiratory arrest [None]
  - Device related infection [None]
  - Staphylococcal infection [None]

NARRATIVE: CASE EVENT DATE: 20150105
